FAERS Safety Report 9261642 (Version 4)
Quarter: 2014Q2

REPORT INFORMATION
  Report Type: Spontaneous
  Country: US (occurrence: US)
  Receive Date: 20130429
  Receipt Date: 20140520
  Transmission Date: 20141212
  Serious: Yes (Hospitalization)
  Sender: FDA-Public Use
  Company Number: US-B.I. PHARMACEUTICALS,INC./RIDGEFIELD-2013-BI-11934BP

PATIENT
  Sex: Male
  Weight: 107.05 kg

DRUGS (8)
  1. PRADAXA [Suspect]
     Indication: ATRIAL FIBRILLATION
     Route: 065
     Dates: start: 20110901, end: 20111130
  2. BABY ASPIRIN [Concomitant]
     Route: 065
  3. DIOVAN [Concomitant]
     Route: 065
  4. DIGOXIN [Concomitant]
     Route: 065
  5. LIPITOR [Concomitant]
     Route: 065
  6. LANTUS [Concomitant]
     Route: 065
  7. LEVOTHYROXINE [Concomitant]
     Route: 065
  8. CARVEDILOL [Concomitant]
     Route: 065

REACTIONS (5)
  - Haemorrhagic stroke [Unknown]
  - Cerebral haemorrhage [Unknown]
  - Gastrointestinal haemorrhage [Unknown]
  - Rectal haemorrhage [Unknown]
  - Respiratory failure [Unknown]
